FAERS Safety Report 8844817 (Version 1)
Quarter: 2012Q4

REPORT INFORMATION
  Report Type: Spontaneous
  Country: US (occurrence: None)
  Receive Date: 20120928
  Receipt Date: 20120928
  Transmission Date: 20130627
  Serious: Yes (Hospitalization)
  Sender: FDA-Public Use
  Company Number: RB-35785-2011

PATIENT
  Sex: Male

DRUGS (2)
  1. SUBOXONE [Suspect]
     Indication: DRUG DEPENDENCE
     Dosage: Cutting film to taper dose Sublingual
     Route: 060
     Dates: start: 2010, end: 2010
  2. SUBOXONE [Suspect]
     Indication: DRUG DEPENDENCE
     Route: 060
     Dates: start: 2010

REACTIONS (4)
  - Wrong technique in drug usage process [None]
  - Road traffic accident [None]
  - Neck injury [None]
  - Neck pain [None]
